FAERS Safety Report 7089719-4 (Version None)
Quarter: 2010Q4

REPORT INFORMATION
  Report Type: 
  Country: None (occurrence: None)
  Receive Date: 20101108
  Receipt Date: 20100324
  Transmission Date: 20110411
  Serious: Yes (Other)
  Sender: FDA-Public Use
  Company Number: US-ABBOTT-10P-163-0634523-00

PATIENT
  Sex: Male
  Weight: 85.352 kg

DRUGS (4)
  1. TRICOR [Suspect]
     Indication: PROPHYLAXIS
     Dates: start: 20100201
  2. TRICOR [Suspect]
     Dates: start: 20100301
  3. AVASTIN [Concomitant]
     Indication: CHEMOTHERAPY
  4. TEMSIROLIMUS [Concomitant]
     Indication: CHEMOTHERAPY

REACTIONS (1)
  - BLOOD CREATININE INCREASED [None]
